FAERS Safety Report 10973345 (Version 3)
Quarter: 2015Q2

REPORT INFORMATION
  Report Type: Report from Study
  Country: BR (occurrence: BR)
  Receive Date: 20150401
  Receipt Date: 20150529
  Transmission Date: 20150821
  Serious: Yes (Other)
  Sender: FDA-Public Use
  Company Number: BR-ROCHE-1257019

PATIENT
  Sex: Female
  Weight: 85 kg

DRUGS (7)
  1. PRIMOGYNA [Concomitant]
  2. CYMBALTA [Concomitant]
     Active Substance: DULOXETINE HYDROCHLORIDE
     Indication: DEPRESSION
  3. ACTEMRA [Suspect]
     Active Substance: TOCILIZUMAB
     Indication: RHEUMATOID ARTHRITIS
     Dosage: MOST RECENT DOSE IN AUG/2014
     Route: 042
     Dates: start: 20120828, end: 20141001
  4. PROPRANOLOL [Concomitant]
     Active Substance: PROPRANOLOL\PROPRANOLOL HYDROCHLORIDE
     Indication: HYPERTENSION
  5. LOSARTAN [Concomitant]
     Active Substance: LOSARTAN
     Indication: HYPERTENSION
  6. VIMOVO [Concomitant]
     Active Substance: ESOMEPRAZOLE MAGNESIUM\NAPROXEN
     Indication: PAIN
  7. CYMBALTA [Concomitant]
     Active Substance: DULOXETINE HYDROCHLORIDE
     Indication: PAIN

REACTIONS (8)
  - Drug dose omission [Unknown]
  - Immunodeficiency [Unknown]
  - Hypersensitivity [Unknown]
  - Sinusitis [Unknown]
  - Therapy responder [Unknown]
  - Herpes zoster [Recovering/Resolving]
  - Oropharyngeal pain [Not Recovered/Not Resolved]
  - Headache [Unknown]
